FAERS Safety Report 8171484-0 (Version None)
Quarter: 2012Q1

REPORT INFORMATION
  Report Type: 
  Country: None (occurrence: None)
  Receive Date: 20120228
  Receipt Date: 20120217
  Transmission Date: 20120608
  Serious: Yes (Other)
  Sender: FDA-Public Use
  Company Number: US-JNJFOC-20120210870

PATIENT
  Age: 83 Year
  Sex: Female
  Weight: 115.67 kg

DRUGS (6)
  1. NIFEDIPINE [Concomitant]
     Indication: HYPERTENSION
     Route: 065
  2. LIPITOR [Concomitant]
     Indication: BLOOD CHOLESTEROL INCREASED
     Route: 065
  3. TYLENOL-500 [Suspect]
     Route: 048
  4. ENALAPRIL MALEATE [Concomitant]
     Indication: HYPERTENSION
     Route: 065
  5. METOPROLOL [Concomitant]
     Indication: HYPERTENSION
     Route: 065
  6. TYLENOL-500 [Suspect]
     Indication: MALAISE
     Route: 048
     Dates: start: 20120217

REACTIONS (1)
  - BLOOD PRESSURE DECREASED [None]
